FAERS Safety Report 8234060-7 (Version None)
Quarter: 2012Q1

REPORT INFORMATION
  Report Type: 
  Country: None (occurrence: None)
  Receive Date: 20120326
  Receipt Date: 20120326
  Transmission Date: 20120608
  Serious: No
  Sender: FDA-Public Use
  Company Number: None

PATIENT
  Sex: Female

DRUGS (1)
  1. BROVANA [Suspect]
     Indication: DRUG THERAPY
     Route: 048
     Dates: start: 20120306, end: 20120317

REACTIONS (5)
  - TONGUE DISCOLOURATION [None]
  - APTYALISM [None]
  - CANDIDIASIS [None]
  - DRY MOUTH [None]
  - PRURITUS GENERALISED [None]
